FAERS Safety Report 7288955-1 (Version None)
Quarter: 2011Q1

REPORT INFORMATION
  Report Type: 
  Country: None (occurrence: None)
  Receive Date: 20110211
  Receipt Date: 20110202
  Transmission Date: 20110831
  Serious: Yes (Hospitalization)
  Sender: FDA-Public Use
  Company Number: DE-ABBOTT-11P-062-0704130-00

PATIENT
  Sex: Female
  Weight: 46.2 kg

DRUGS (3)
  1. PREDNISOLONE [Concomitant]
     Indication: CROHN'S DISEASE
     Dates: start: 20080101
  2. HUMIRA [Suspect]
     Indication: CROHN'S DISEASE
     Route: 058
     Dates: start: 20100401
  3. PANTOPRAZOLE [Concomitant]
     Indication: CROHN'S DISEASE
     Dates: start: 20080101

REACTIONS (1)
  - ANASTOMOTIC STENOSIS [None]
